FAERS Safety Report 23893865 (Version 1)
Quarter: 2024Q2

REPORT INFORMATION
  Report Type: Spontaneous
  Country: US (occurrence: None)
  Receive Date: 20240524
  Receipt Date: 20240524
  Transmission Date: 20240716
  Serious: No
  Sender: FDA-Public Use
  Company Number: US-ROCHE-3433812

PATIENT
  Age: 54 Year
  Sex: Female
  Weight: 99.88 kg

DRUGS (10)
  1. ACTEMRA [Suspect]
     Active Substance: TOCILIZUMAB
     Indication: Rheumatoid arthritis
     Dosage: 162MG/0.9M ACTPEN
     Route: 058
     Dates: start: 202211, end: 2022
  2. ACTEMRA [Suspect]
     Active Substance: TOCILIZUMAB
  3. ACTEMRA [Suspect]
     Active Substance: TOCILIZUMAB
     Dosage: 162MG/0.9M ACTPEN
     Route: 058
     Dates: start: 2022
  4. ACTEMRA [Suspect]
     Active Substance: TOCILIZUMAB
  5. ACTEMRA [Suspect]
     Active Substance: TOCILIZUMAB
     Indication: Rheumatoid arthritis
     Route: 042
     Dates: end: 2022
  6. LIOTHYRONINE [Concomitant]
     Active Substance: LIOTHYRONINE
     Indication: Hypothyroidism
  7. SYNTHROID [Concomitant]
     Active Substance: LEVOTHYROXINE SODIUM
  8. PROGESTERONE [Concomitant]
     Active Substance: PROGESTERONE
  9. SINGULAIR [Concomitant]
     Active Substance: MONTELUKAST SODIUM
     Indication: Hypersensitivity
  10. CELEBREX [Concomitant]
     Active Substance: CELECOXIB

REACTIONS (6)
  - Drug delivery system malfunction [Unknown]
  - Product dose omission issue [Unknown]
  - Device defective [Unknown]
  - Product storage error [Unknown]
  - Needle issue [Unknown]
  - No adverse event [Unknown]

NARRATIVE: CASE EVENT DATE: 20231003
